FAERS Safety Report 17003993 (Version 2)
Quarter: 2019Q4

REPORT INFORMATION
  Report Type: Spontaneous
  Country: DK (occurrence: DK)
  Receive Date: 20191107
  Receipt Date: 20191111
  Transmission Date: 20200122
  Serious: Yes (Other)
  Sender: FDA-Public Use
  Company Number: DK-BAYER-2019-197257

PATIENT
  Age: 3 Decade
  Sex: Female

DRUGS (1)
  1. KYLEENA [Suspect]
     Active Substance: LEVONORGESTREL
     Dosage: 17.5 MCG/24HR, CONT
     Route: 015
     Dates: start: 20191021, end: 20191023

REACTIONS (1)
  - Abdominal infection [Recovering/Resolving]
